FAERS Safety Report 8271555-4 (Version None)
Quarter: 2012Q2

REPORT INFORMATION
  Report Type: 
  Country: None (occurrence: None)
  Receive Date: 20120410
  Receipt Date: 20120406
  Transmission Date: 20120825
  Serious: No
  Sender: FDA-Public Use
  Company Number: US-PFIZER INC-2012087502

PATIENT
  Sex: Male

DRUGS (10)
  1. LYSINE [Concomitant]
     Indication: STOMATITIS
     Dosage: UNK
  2. ACETYLSALICYLIC ACID [Concomitant]
     Indication: CARDIAC DISORDER
     Dosage: 81 MG, 1X/DAY
  3. SYNTHROID [Concomitant]
     Indication: THYROID DISORDER
     Dosage: UNK
  4. MULTI-VITAMINS [Concomitant]
     Dosage: UNK
  5. ZOLOFT [Suspect]
     Indication: DEPRESSION
     Dosage: 25 MG, UNK
  6. LIPITOR [Suspect]
     Indication: BLOOD CHOLESTEROL ABNORMAL
     Dosage: 10 MG, DAILY
  7. IBUPROFEN (ADVIL) [Suspect]
     Indication: PAIN
     Dosage: UNK
  8. HALOPERIDOL [Concomitant]
     Dosage: UNK
  9. CALCIUM [Concomitant]
     Dosage: UNK
  10. POTASSIUM [Concomitant]
     Dosage: UNK

REACTIONS (8)
  - VOMITING [None]
  - MALAISE [None]
  - DRUG INEFFECTIVE [None]
  - GASTROINTESTINAL DISORDER [None]
  - SWELLING [None]
  - HEARING IMPAIRED [None]
  - NAUSEA [None]
  - INFLAMMATION [None]
